FAERS Safety Report 17950171 (Version 1)
Quarter: 2020Q2

REPORT INFORMATION
  Report Type: Spontaneous
  Country: FR (occurrence: FR)
  Receive Date: 20200626
  Receipt Date: 20200626
  Transmission Date: 20200714
  Serious: Yes (Hospitalization)
  Sender: FDA-Public Use
  Company Number: NVSC2020FR176858

PATIENT
  Age: 75 Year
  Sex: Female

DRUGS (7)
  1. PIRACETAM [Concomitant]
     Active Substance: PIRACETAM
     Indication: PRODUCT USED FOR UNKNOWN INDICATION
     Dosage: UNK (1400MG LE MATIN 2000MG MIDI ET SOIR)
     Route: 065
  2. LAROXYL [Suspect]
     Active Substance: AMITRIPTYLINE HYDROCHLORIDE
     Indication: DEPRESSION
     Dosage: 40 GTT, QD (SOLUTION BUVABLE)
     Route: 048
     Dates: start: 2013
  3. TEGRETOL [Suspect]
     Active Substance: CARBAMAZEPINE
     Indication: PRODUCT USED FOR UNKNOWN INDICATION
     Dosage: 1.5 DF, QD (COMPRIM? S?CABLE)
     Route: 048
     Dates: end: 2017
  4. MICROPAKINE [Concomitant]
     Active Substance: VALPROATE SODIUM
     Indication: EPILEPSY
     Dosage: 1600 MG, QD
     Route: 048
     Dates: start: 2013
  5. EPITOMAX [Concomitant]
     Active Substance: TOPIRAMATE
     Dosage: 50 MG, QD (50 MG, COMPRIM? PELLICUL?)
     Route: 065
     Dates: start: 2015, end: 20170123
  6. EPITOMAX [Concomitant]
     Active Substance: TOPIRAMATE
     Indication: EPILEPSY
     Dosage: 200 MG, QD (100 MG, COMPRIM? PELLICUL?)
     Route: 048
     Dates: start: 2015
  7. RIVOTRIL [Suspect]
     Active Substance: CLONAZEPAM
     Indication: EPILEPSY
     Dosage: UNK
     Route: 048
     Dates: end: 2017

REACTIONS (2)
  - Gait disturbance [Recovering/Resolving]
  - Balance disorder [Recovering/Resolving]

NARRATIVE: CASE EVENT DATE: 2015
